FAERS Safety Report 16166149 (Version 1)
Quarter: 2019Q2

REPORT INFORMATION
  Report Type: Spontaneous
  Country: ES (occurrence: ES)
  Receive Date: 20190406
  Receipt Date: 20190406
  Transmission Date: 20190711
  Serious: Yes (Life-Threatening, Hospitalization)
  Sender: FDA-Public Use
  Company Number: ES-ACCORD-119145

PATIENT
  Age: 71 Year
  Sex: Male

DRUGS (6)
  1. ABILIFY MAINTENA [Interacting]
     Active Substance: ARIPIPRAZOLE
     Indication: SCHIZOPHRENIA
     Route: 030
     Dates: start: 20181217, end: 20181217
  2. VALPROIC ACID. [Concomitant]
     Active Substance: VALPROIC ACID
     Indication: SCHIZOPHRENIA
     Route: 048
     Dates: start: 201701, end: 20181221
  3. GABAPENTIN. [Concomitant]
     Active Substance: GABAPENTIN
     Indication: SCHIZOPHRENIA
     Route: 048
     Dates: start: 201701, end: 20181227
  4. BIPERIDEN [Concomitant]
     Active Substance: BIPERIDEN
     Indication: SCHIZOPHRENIA
     Route: 048
     Dates: start: 20181203, end: 20181227
  5. QUETIAPINE. [Suspect]
     Active Substance: QUETIAPINE
     Indication: SCHIZOPHRENIA
     Route: 048
     Dates: start: 201708, end: 20181221
  6. SERTRALINE [Interacting]
     Active Substance: SERTRALINE HYDROCHLORIDE
     Indication: SCHIZOPHRENIA
     Route: 048
     Dates: start: 201701, end: 20181221

REACTIONS (2)
  - Drug interaction [Unknown]
  - Neuroleptic malignant syndrome [Recovered/Resolved]

NARRATIVE: CASE EVENT DATE: 20181219
